FAERS Safety Report 23506579 (Version 1)
Quarter: 2024Q1

REPORT INFORMATION
  Report Type: Spontaneous
  Country: US (occurrence: US)
  Receive Date: 20240209
  Receipt Date: 20240209
  Transmission Date: 20240410
  Serious: No
  Sender: FDA-Public Use
  Company Number: US-ASTELLAS-2023US036633

PATIENT
  Age: 88 Year
  Sex: Female

DRUGS (5)
  1. IZERVAY [Suspect]
     Active Substance: AVACINCAPTAD PEGOL SODIUM
     Indication: Dry age-related macular degeneration
     Dosage: UNK, UNKNOWN FREQ. (BOTH EYES)
     Route: 050
     Dates: start: 20231204
  2. IZERVAY [Suspect]
     Active Substance: AVACINCAPTAD PEGOL SODIUM
     Indication: Dry age-related macular degeneration
     Dosage: UNK, UNKNOWN FREQ. (BOTH EYES)
     Route: 050
     Dates: start: 20231204
  3. IZERVAY [Suspect]
     Active Substance: AVACINCAPTAD PEGOL SODIUM
     Indication: Dry age-related macular degeneration
     Dosage: UNK, UNKNOWN FREQ. (BOTH EYES)
     Route: 050
     Dates: start: 20231204
  4. IZERVAY [Suspect]
     Active Substance: AVACINCAPTAD PEGOL SODIUM
     Indication: Dry age-related macular degeneration
     Dosage: UNK, UNKNOWN FREQ. (BOTH EYES)
     Route: 050
     Dates: start: 20231204
  5. IZERVAY [Suspect]
     Active Substance: AVACINCAPTAD PEGOL SODIUM
     Indication: Dry age-related macular degeneration
     Dosage: UNK, UNKNOWN FREQ. (BOTH EYES)
     Route: 050
     Dates: start: 20231204

REACTIONS (5)
  - Conjunctivitis [Recovering/Resolving]
  - Eyelid oedema [Recovering/Resolving]
  - Keratitis [Recovering/Resolving]
  - Eye allergy [Recovering/Resolving]
  - Corneal oedema [Unknown]

NARRATIVE: CASE EVENT DATE: 20231201
